FAERS Safety Report 12768576 (Version 1)
Quarter: 2016Q3

REPORT INFORMATION
  Report Type: Spontaneous
  Country: DE (occurrence: DE)
  Receive Date: 20160921
  Receipt Date: 20160921
  Transmission Date: 20161109
  Serious: Yes (Congenital Anomaly, Other)
  Sender: FDA-Public Use
  Company Number: DE-TEVA-691619GER

PATIENT
  Age: 1 Day
  Sex: Female

DRUGS (3)
  1. FEMIBION [Concomitant]
     Active Substance: VITAMINS
     Indication: PROPHYLAXIS OF NEURAL TUBE DEFECT
     Route: 064
     Dates: start: 20150724, end: 20160429
  2. L-THYROXIN [Concomitant]
     Active Substance: LEVOTHYROXINE SODIUM
     Indication: HYPOTHYROIDISM
     Dosage: 50 MICROGRAM DAILY;
     Route: 064
     Dates: start: 20150724, end: 20160429
  3. METOPROLOL. [Suspect]
     Active Substance: METOPROLOL
     Indication: HYPERTENSION
     Dosage: 95 MILLIGRAM DAILY;
     Route: 064
     Dates: start: 20150724, end: 20160429

REACTIONS (4)
  - Foetal exposure during pregnancy [Unknown]
  - Small for dates baby [Unknown]
  - Hypertonia neonatal [Unknown]
  - Microcephaly [Recovering/Resolving]

NARRATIVE: CASE EVENT DATE: 20160429
